FAERS Safety Report 8821612 (Version 1)
Quarter: 2012Q4

REPORT INFORMATION
  Report Type: 
  Country: CA (occurrence: CA)
  Receive Date: 20121002
  Receipt Date: 20121002
  Transmission Date: 20130627
  Serious: Yes (Other)
  Sender: FDA-Public Use
  Company Number: CA-VERTEX PHARMACEUTICAL INC.-2012-020473

PATIENT
  Age: 50 Year
  Sex: Male
  Weight: 64 kg

DRUGS (6)
  1. INCIVEK [Suspect]
     Indication: HEPATITIS C
     Dosage: 375 mg, tid
     Route: 048
     Dates: start: 20120605, end: 20120804
  2. PEGINTERFERON ALFA-2A [Suspect]
     Indication: HEPATITIS C
     Dosage: 180 UNK, UNK
     Route: 058
  3. RIBAVIRIN [Suspect]
     Indication: HEPATITIS C
     Dosage: 600 mg, bid
     Route: 048
  4. NEUPOGEN [Concomitant]
  5. XALATAN [Concomitant]
  6. AZOPT [Concomitant]

REACTIONS (2)
  - Erythema multiforme [Not Recovered/Not Resolved]
  - Incorrect dose administered [Unknown]
